FAERS Safety Report 16521749 (Version 1)
Quarter: 2019Q3

REPORT INFORMATION
  Report Type: Spontaneous
  Country: LT (occurrence: LT)
  Receive Date: 20190703
  Receipt Date: 20190703
  Transmission Date: 20191004
  Serious: Yes (Other)
  Sender: FDA-Public Use
  Company Number: LT-TEVA-2019-LT-1071282

PATIENT
  Age: 52 Year
  Sex: Female
  Weight: 77 kg

DRUGS (1)
  1. ATORVASTATIN TEVA [Suspect]
     Active Substance: ATORVASTATIN
     Indication: BLOOD CHOLESTEROL INCREASED
     Dosage: ONE TABLET IN DAY
     Route: 048
     Dates: start: 20190318, end: 20190320

REACTIONS (9)
  - Nausea [Recovered/Resolved]
  - Myalgia [Recovered/Resolved]
  - Arthralgia [Recovered/Resolved]
  - Abdominal pain upper [Recovered/Resolved]
  - Headache [Recovered/Resolved]
  - Dizziness [Recovered/Resolved]
  - Acne [Recovered/Resolved]
  - Skin exfoliation [Recovered/Resolved]
  - Breast haemorrhage [Recovered/Resolved]

NARRATIVE: CASE EVENT DATE: 20190319
